FAERS Safety Report 21402337 (Version 2)
Quarter: 2022Q4

REPORT INFORMATION
  Report Type: Spontaneous
  Country: CN (occurrence: CN)
  Receive Date: 20221003
  Receipt Date: 20221027
  Transmission Date: 20230112
  Serious: Yes (Hospitalization)
  Sender: FDA-Public Use
  Company Number: CN-ASPEN-GLO2022CN005735

PATIENT

DRUGS (5)
  1. LEUKERAN [Suspect]
     Active Substance: CHLORAMBUCIL
     Indication: Chronic lymphocytic leukaemia
     Dosage: 32 MG, 1 DOSE 2 WEEKS, ON DAY 1 AND DAY 15 OF EACH PERIOD (EVERY 28 DAYS/PERIOD),
     Route: 048
     Dates: start: 20220326, end: 20220912
  2. RITUXIMAB [Suspect]
     Active Substance: RITUXIMAB
     Indication: Chronic lymphocytic leukaemia
     Dosage: 700 MG, 1 DOSE 4 WEEKS
     Route: 041
     Dates: start: 20220326, end: 20220326
  3. RITUXIMAB [Suspect]
     Active Substance: RITUXIMAB
     Dosage: 950 UNK
     Route: 041
     Dates: start: 20220420, end: 20220830
  4. ENTECAVIR [Concomitant]
     Active Substance: ENTECAVIR
     Indication: Antiviral prophylaxis
     Dosage: 0.5 MG, QD, PO
     Route: 048
     Dates: start: 20220326
  5. ESTAZOLAM [Concomitant]
     Active Substance: ESTAZOLAM
     Indication: Insomnia
     Dosage: 2 TABLETS, QD, PO,
     Route: 048
     Dates: start: 20220511

REACTIONS (1)
  - Herpes zoster [Recovered/Resolved]

NARRATIVE: CASE EVENT DATE: 20220914
